FAERS Safety Report 5200883-1 (Version None)
Quarter: 2007Q1

REPORT INFORMATION
  Report Type: 
  Country: None (occurrence: None)
  Receive Date: 20070103
  Receipt Date: 20061221
  Transmission Date: 20070707
  Serious: Yes (Death, Hospitalization)
  Sender: FDA-Public Use
  Company Number: GXKR2006GB08462

PATIENT
  Age: 70 Year
  Sex: Male

DRUGS (1)
  1. TRIMETHOPRIM [Suspect]
     Indication: URINARY TRACT INFECTION

REACTIONS (6)
  - BLISTER [None]
  - CARDIAC ARREST [None]
  - GENERAL PHYSICAL HEALTH DETERIORATION [None]
  - PAIN OF SKIN [None]
  - PRURITUS [None]
  - TOXIC EPIDERMAL NECROLYSIS [None]
